FAERS Safety Report 9215884 (Version 4)
Quarter: 2013Q3

REPORT INFORMATION
  Report Type: Report from Study
  Country: CA (occurrence: CA)
  Receive Date: 20130408
  Receipt Date: 20130703
  Transmission Date: 20140515
  Serious: Yes (Hospitalization, Other)
  Sender: FDA-Public Use
  Company Number: CA-JNJFOC-20130401055

PATIENT
  Age: 44 Year
  Sex: Male
  Weight: 72.8 kg

DRUGS (6)
  1. REMICADE [Suspect]
     Indication: CROHN^S DISEASE
     Dosage: HAD 5 INFUSIONS
     Route: 042
     Dates: start: 20130213
  2. ENTOCORT [Concomitant]
     Route: 065
  3. ASACOL [Concomitant]
     Route: 065
  4. WARFARIN [Concomitant]
     Route: 065
  5. POTASSIUM [Concomitant]
     Route: 065
  6. IRON [Concomitant]
     Route: 065

REACTIONS (6)
  - Fistula [Recovered/Resolved]
  - Abdominal pain [Recovering/Resolving]
  - Abscess [Recovering/Resolving]
  - Intestinal resection [Recovering/Resolving]
  - Pain [Not Recovered/Not Resolved]
  - White blood cell count abnormal [Unknown]
